FAERS Safety Report 15525507 (Version 1)
Quarter: 2018Q4

REPORT INFORMATION
  Report Type: Spontaneous
  Country: FR (occurrence: FR)
  Receive Date: 20181019
  Receipt Date: 20181019
  Transmission Date: 20190205
  Serious: Yes (Life-Threatening)
  Sender: FDA-Public Use
  Company Number: FR-TEVA-2018-FR-966131

PATIENT
  Age: 48 Year
  Sex: Male

DRUGS (5)
  1. SEROPLEX 10 MG, COMPRIM? PELLICUL? S?CABLE [Suspect]
     Active Substance: ESCITALOPRAM OXALATE
     Indication: DEPRESSION
     Dosage: 1 DOSAGE FORMS DAILY;
     Route: 048
     Dates: start: 201709
  2. RHINOFLUIMUCIL, SOLUTION POUR PULV?RISATION NASALE [Suspect]
     Active Substance: ACETYLCYSTEINE\BENZALKONIUM CHLORIDE\TUAMINOHEPTANE SULFATE
     Route: 045
     Dates: start: 20171010
  3. ALPRAZOLAM MYLAN 0,25 MG, COMPRIM? S?CABLE [Concomitant]
     Active Substance: ALPRAZOLAM
     Indication: ANXIETY
     Dosage: 1 DOSAGE FORMS DAILY;
     Route: 048
     Dates: start: 201709
  4. PREDNISOLONE. [Suspect]
     Active Substance: PREDNISOLONE
     Indication: NASOPHARYNGITIS
     Dosage: 20 MILLIGRAM DAILY;
     Route: 048
     Dates: start: 20171010
  5. TUSSIPAX [Concomitant]
     Indication: NASOPHARYNGITIS
     Route: 048
     Dates: start: 20171010

REACTIONS (1)
  - Generalised tonic-clonic seizure [Recovered/Resolved]

NARRATIVE: CASE EVENT DATE: 20171027
